FAERS Safety Report 10263214 (Version 2)
Quarter: 2014Q2

REPORT INFORMATION
  Report Type: Report from Study
  Country: US (occurrence: US)
  Receive Date: 20140626
  Receipt Date: 20140626
  Transmission Date: 20141212
  Serious: Yes (Other)
  Sender: FDA-Public Use
  Company Number: US-MYLANLABS-2014S1008305

PATIENT
  Age: 58 Year
  Sex: Female

DRUGS (9)
  1. CLOZAPINE TABLETS [Suspect]
     Indication: SCHIZOPHRENIA
     Route: 048
     Dates: end: 20140327
  2. CLOZAPINE TABLETS [Suspect]
     Indication: SCHIZOPHRENIA
     Route: 048
     Dates: end: 20140327
  3. LACTULOSE [Concomitant]
  4. FLUPHENAZINE [Concomitant]
  5. TRENTAL [Concomitant]
  6. LOVASTATIN [Concomitant]
  7. NIFEDIPINE [Concomitant]
  8. SYNTHROID [Concomitant]
  9. METFORMIN [Concomitant]

REACTIONS (1)
  - Granulocytopenia [Not Recovered/Not Resolved]
